FAERS Safety Report 16328105 (Version 1)
Quarter: 2019Q2

REPORT INFORMATION
  Report Type: Report from Study
  Country: GB (occurrence: GB)
  Receive Date: 20190518
  Receipt Date: 20190518
  Transmission Date: 20190711
  Serious: Yes (Other)
  Sender: FDA-Public Use
  Company Number: GB-AUROBINDO-AUR-APL-2019-027646

PATIENT

DRUGS (2)
  1. HUMAN NORMAL IMMUNOGLOBULIN [Suspect]
     Active Substance: HUMAN IMMUNOGLOBULIN G
     Indication: LOWER RESPIRATORY TRACT INFECTION VIRAL
     Dosage: 2000 MG/KG, IN SPLIT DOSES OVER 2-4 DAYS
     Route: 042
  2. RIBAVIRIN. [Suspect]
     Active Substance: RIBAVIRIN
     Indication: LOWER RESPIRATORY TRACT INFECTION VIRAL
     Dosage: ONE, ONCE A DAY15-20MG/KG DIVIDED INTO 3 DAILY DOSES
     Route: 048

REACTIONS (1)
  - Alanine aminotransferase increased [Recovered/Resolved]
